FAERS Safety Report 8934956 (Version 1)
Quarter: 2012Q4

REPORT INFORMATION
  Report Type: 
  Country: US (occurrence: US)
  Receive Date: 20121129
  Receipt Date: 20121129
  Transmission Date: 20130627
  Serious: No
  Sender: FDA-Public Use
  Company Number: US-ASTRAZENECA-2012SE53164

PATIENT
  Age: 66 Year
  Sex: Male

DRUGS (1)
  1. SEROQUEL XR [Suspect]
     Route: 048

REACTIONS (4)
  - Insomnia [Unknown]
  - Bipolar disorder [Unknown]
  - Feeling abnormal [Unknown]
  - Drug dose omission [Unknown]
